FAERS Safety Report 17353181 (Version 1)
Quarter: 2020Q1

REPORT INFORMATION
  Report Type: Report from Study
  Country: IT (occurrence: IT)
  Receive Date: 20200131
  Receipt Date: 20200131
  Transmission Date: 20200409
  Serious: Yes (Other)
  Sender: FDA-Public Use
  Company Number: IT-ROCHE-2538807

PATIENT

DRUGS (1)
  1. OCRELIZUMAB. [Suspect]
     Active Substance: OCRELIZUMAB
     Indication: MULTIPLE SCLEROSIS
     Route: 042

REACTIONS (11)
  - Respiratory tract infection [Unknown]
  - Herpes simplex [Unknown]
  - Urinary tract infection [Unknown]
  - Fungal infection [Unknown]
  - Cytomegalovirus infection [Unknown]
  - Viral infection [Unknown]
  - Neutropenia [Unknown]
  - Lymphopenia [Recovered/Resolved]
  - Bacterial infection [Unknown]
  - Hypogammaglobulinaemia [Unknown]
  - Varicella zoster virus infection [Unknown]
